FAERS Safety Report 4314891-6 (Version None)
Quarter: 2004Q1

REPORT INFORMATION
  Report Type: 
  Country: None (occurrence: None)
  Receive Date: 20040310
  Receipt Date: 20040310
  Transmission Date: 20041129
  Serious: Yes (Hospitalization)
  Sender: FDA-Public Use
  Company Number: None

PATIENT
  Age: 16 Year
  Sex: Female

DRUGS (2)
  1. DEPO-PROVERA [Suspect]
     Indication: CONTRACEPTION
     Dosage: USUAL Q3MOS INTRAMUSCULAR
     Route: 030
     Dates: start: 20000501, end: 20020701
  2. AVALIDE BP [Concomitant]

REACTIONS (11)
  - AMENORRHOEA [None]
  - ENDOMETRIOSIS [None]
  - ENDOMETRITIS [None]
  - HAEMATOCRIT DECREASED [None]
  - HAEMOGLOBIN DECREASED [None]
  - HEADACHE [None]
  - HYPERTENSION [None]
  - METRORRHAGIA [None]
  - POLYCYSTIC OVARIES [None]
  - UTERINE HAEMORRHAGE [None]
  - WEIGHT INCREASED [None]
